FAERS Safety Report 25131201 (Version 1)
Quarter: 2025Q1

REPORT INFORMATION
  Report Type: Spontaneous
  Country: US (occurrence: US)
  Receive Date: 20250327
  Receipt Date: 20250327
  Transmission Date: 20250408
  Serious: No
  Sender: GALPHARM INTERNATIONAL
  Company Number: US-PERRIGO-25US002311

PATIENT
  Age: 74 Year
  Sex: Female

DRUGS (1)
  1. PSEUDOEPHEDRINE HYDROCHLORIDE [Suspect]
     Active Substance: PSEUDOEPHEDRINE HYDROCHLORIDE
     Indication: Sinus disorder
     Route: 048
     Dates: start: 20250204, end: 20250204

REACTIONS (2)
  - Hypertension [Recovering/Resolving]
  - Product selection error [Recovered/Resolved]

NARRATIVE: CASE EVENT DATE: 20250201
